FAERS Safety Report 5771989-3 (Version None)
Quarter: 2008Q2

REPORT INFORMATION
  Report Type: 
  Country: None (occurrence: None)
  Receive Date: 20080611
  Receipt Date: 20080528
  Transmission Date: 20081010
  Serious: Yes (Other)
  Sender: FDA-Public Use
  Company Number: 2008-0656

PATIENT
  Age: 68 Year
  Sex: Male

DRUGS (2)
  1. SOMATULINA AUTOGEL 90MG (LANREOTIDE ACETATE) (LANREOTIDE ACETATE) [Suspect]
     Indication: METASTASES TO LIVER
     Dosage: 90 MG, 1 IN 28 D SUBCUTANEOUS 11 THERAPIES AT EVENT ONSET
     Route: 058
     Dates: start: 20070420, end: 20080301
  2. SOMATULINA AUTOGEL 90MG (LANREOTIDE ACETATE) (LANREOTIDE ACETATE) [Suspect]
     Indication: METASTATIC CARCINOID TUMOUR
     Dosage: 90 MG, 1 IN 28 D SUBCUTANEOUS 11 THERAPIES AT EVENT ONSET
     Route: 058
     Dates: start: 20070420, end: 20080301

REACTIONS (2)
  - ATRIOVENTRICULAR BLOCK [None]
  - SINUS BRADYCARDIA [None]
